FAERS Safety Report 7896061-8 (Version None)
Quarter: 2011Q4

REPORT INFORMATION
  Report Type: 
  Country: None (occurrence: None)
  Receive Date: 20111106
  Receipt Date: 20110906
  Transmission Date: 20120403
  Serious: No
  Sender: FDA-Public Use
  Company Number: US-AMGEN-USASP2011038114

PATIENT
  Age: 60 Year
  Sex: Female
  Weight: 61.224 kg

DRUGS (1)
  1. ENBREL [Suspect]
     Indication: PSORIASIS
     Dosage: 50 MG, QWK
     Dates: start: 20041001

REACTIONS (2)
  - SUNBURN [None]
  - PSORIASIS [None]
